APPROVED DRUG PRODUCT: PAMINE
Active Ingredient: METHSCOPOLAMINE BROMIDE
Strength: 2.5MG **Federal Register determination that product was not discontinued or withdrawn for safety or effectiveness reasons**
Dosage Form/Route: TABLET;ORAL
Application: N008848 | Product #001
Applicant: FOUGERA PHARMACEUTICALS INC
Approved: Approved Prior to Jan 1, 1982 | RLD: No | RS: No | Type: DISCN